FAERS Safety Report 5069666-X (Version None)
Quarter: 2006Q3

REPORT INFORMATION
  Report Type: 
  Country: None (occurrence: None)
  Receive Date: 20060714
  Receipt Date: 20060405
  Transmission Date: 20061208
  Serious: No
  Sender: FDA-Public Use
  Company Number: 2006SP001568

PATIENT
  Age: 42 Year
  Sex: Female
  Weight: 154.223 kg

DRUGS (5)
  1. LUNESTA [Suspect]
     Indication: INSOMNIA
     Dosage: 3 MG;HS;ORAL
     Route: 048
     Dates: start: 20060301
  2. NEURONTIN [Concomitant]
  3. RISPERIDONE [Concomitant]
  4. IRON [Concomitant]
  5. SULINDAC [Concomitant]

REACTIONS (2)
  - DYSGEUSIA [None]
  - INSOMNIA [None]
